FAERS Safety Report 15526471 (Version 1)
Quarter: 2018Q4

REPORT INFORMATION
  Report Type: Spontaneous
  Country: ZA (occurrence: ZA)
  Receive Date: 20181018
  Receipt Date: 20181018
  Transmission Date: 20190205
  Serious: Yes (Other)
  Sender: FDA-Public Use
  Company Number: ZA-PFIZER INC-2018419846

PATIENT
  Age: 68 Year
  Sex: Male

DRUGS (6)
  1. ESPIRIDE [Suspect]
     Active Substance: SULPIRIDE
     Dosage: 50 MG, UNK
  2. CARZIN XL [Suspect]
     Active Substance: DOXAZOSIN MESYLATE
     Dosage: 4 MG, UNK
  3. CIRCADIN [Suspect]
     Active Substance: MELATONIN
     Dosage: 2 MG, UNK
  4. ASPAVOR [Suspect]
     Active Substance: ATORVASTATIN
     Dosage: 20 MG, UNK
  5. VENLOR XL [Suspect]
     Active Substance: VENLAFAXINE HYDROCHLORIDE
     Dosage: 75 MG, UNK
  6. TRAZODONE [Suspect]
     Active Substance: TRAZODONE HYDROCHLORIDE

REACTIONS (1)
  - Parkinson^s disease [Unknown]
